FAERS Safety Report 4950497-3 (Version None)
Quarter: 2006Q1

REPORT INFORMATION
  Report Type: 
  Country: None (occurrence: None)
  Receive Date: 20060322
  Receipt Date: 20060308
  Transmission Date: 20060701
  Serious: Yes (Hospitalization)
  Sender: FDA-Public Use
  Company Number: JP-JPN-A200600886

PATIENT
  Age: 55 Year
  Sex: Male
  Weight: 62 kg

DRUGS (2)
  1. ZOVIRAX [Suspect]
     Indication: VARICELLA
     Dosage: 500MG THREE TIMES PER DAY
     Route: 042
     Dates: start: 20060227, end: 20060304
  2. PROGRAF [Concomitant]
     Indication: GRAFT VERSUS HOST DISEASE
     Dosage: 1MG PER DAY
     Route: 048

REACTIONS (7)
  - ANURIA [None]
  - BLOOD CREATININE INCREASED [None]
  - DEHYDRATION [None]
  - HAEMODIALYSIS [None]
  - RENAL FAILURE [None]
  - RENAL FAILURE ACUTE [None]
  - URINE OUTPUT DECREASED [None]
